FAERS Safety Report 4972425-7 (Version None)
Quarter: 2006Q2

REPORT INFORMATION
  Report Type: 
  Country: None (occurrence: None)
  Receive Date: 20060413
  Receipt Date: 20051020
  Transmission Date: 20061013
  Serious: Yes (Hospitalization, Disabling)
  Sender: FDA-Public Use
  Company Number: US-MERCK-0510USA08443

PATIENT
  Age: 57 Year
  Sex: Male
  Weight: 108 kg

DRUGS (35)
  1. VIOXX [Suspect]
     Indication: ARTHRITIS
     Route: 048
     Dates: start: 20020205, end: 20040527
  2. VIOXX [Suspect]
     Route: 048
     Dates: start: 20020205, end: 20040527
  3. TOPROL-XL [Concomitant]
     Route: 065
  4. HYDROCHLOROTHIAZIDE [Concomitant]
     Route: 065
  5. ZESTRIL [Concomitant]
     Route: 065
  6. AVAPRO [Concomitant]
     Route: 065
  7. LIPITOR [Concomitant]
     Route: 065
  8. PREVACID [Concomitant]
     Route: 065
  9. DARVOCET [Concomitant]
     Route: 065
  10. ELAVIL [Concomitant]
     Route: 065
  11. XANAX [Concomitant]
     Route: 065
  12. CLARITIN [Concomitant]
     Route: 065
  13. LASIX [Concomitant]
     Route: 065
  14. NEURONTIN [Concomitant]
     Route: 065
  15. VIAGRA [Concomitant]
     Route: 065
  16. ZITHROMAX [Concomitant]
     Route: 065
  17. PRILOSEC [Concomitant]
     Route: 065
  18. POTASSIUM CHLORIDE [Concomitant]
     Route: 065
  19. HYDROCODONE HYDROCHLORIDE [Concomitant]
     Route: 065
  20. CLONIDINE [Concomitant]
     Route: 065
  21. INDOMETHACIN [Concomitant]
     Route: 065
  22. ALLOPURINOL [Concomitant]
     Route: 065
  23. PREDNISONE [Concomitant]
     Route: 065
  24. PROTONIX [Concomitant]
     Route: 065
  25. COLCHICINE [Concomitant]
     Route: 065
  26. CELEBREX [Concomitant]
     Route: 065
  27. ALLEGRA [Concomitant]
     Route: 065
  28. ZOCOR [Concomitant]
     Route: 065
  29. ATENOLOL [Concomitant]
     Route: 065
  30. AUGMENTIN '125' [Concomitant]
     Route: 065
  31. ACETAMINOPHEN AND CODEINE [Concomitant]
     Route: 065
  32. CEPHALEXIN [Concomitant]
     Route: 065
  33. ZANAFLEX [Concomitant]
     Route: 065
  34. BEXTRA [Concomitant]
     Route: 065
  35. LORTAB [Concomitant]
     Route: 065

REACTIONS (16)
  - ANGINA PECTORIS [None]
  - ANXIETY [None]
  - ARTERIOSCLEROSIS [None]
  - BACK INJURY [None]
  - CARDIOMYOPATHY [None]
  - CEREBROVASCULAR ACCIDENT [None]
  - COLONIC POLYP [None]
  - DIZZINESS [None]
  - GASTROINTESTINAL DISORDER [None]
  - HAEMATOCHEZIA [None]
  - LACUNAR INFARCTION [None]
  - MITRAL VALVE DISEASE [None]
  - ROTATOR CUFF SYNDROME [None]
  - SINUS BRADYCARDIA [None]
  - TENDON DISORDER [None]
  - TRANSIENT ISCHAEMIC ATTACK [None]
